FAERS Safety Report 11619114 (Version 3)
Quarter: 2016Q1

REPORT INFORMATION
  Report Type: Report from Study
  Country: US (occurrence: US)
  Receive Date: 20151012
  Receipt Date: 20160129
  Transmission Date: 20160525
  Serious: Yes (Other)
  Sender: FDA-Public Use
  Company Number: US-AMGEN-USASL2015101579

PATIENT
  Age: 31 Year
  Sex: Female

DRUGS (2)
  1. ENBREL [Suspect]
     Active Substance: ETANERCEPT
     Indication: RHEUMATOID ARTHRITIS
     Dosage: 50 MG WEEKLY
     Route: 065
     Dates: start: 20150922
  2. PLAQUENIL [Concomitant]
     Active Substance: HYDROXYCHLOROQUINE SULFATE
     Dosage: UNK

REACTIONS (10)
  - Hypersensitivity [Unknown]
  - Rheumatoid arthritis [Unknown]
  - Erythema [Unknown]
  - Eye disorder [Unknown]
  - Lethargy [Unknown]
  - Systemic lupus erythematosus rash [Unknown]
  - Yawning [Unknown]
  - Butterfly rash [Unknown]
  - Fatigue [Unknown]
  - Inflammation [Unknown]

NARRATIVE: CASE EVENT DATE: 2015
